FAERS Safety Report 8153111-1 (Version None)
Quarter: 2012Q1

REPORT INFORMATION
  Report Type: 
  Country: None (occurrence: None)
  Receive Date: 20120221
  Receipt Date: 20120209
  Transmission Date: 20120608
  Serious: No
  Sender: FDA-Public Use
  Company Number: US-B.I. PHARMACEUTICALS,INC./RIDGEFIELD-2011-BP-19706BP

PATIENT
  Sex: Female

DRUGS (4)
  1. ATENOLOL [Concomitant]
     Indication: HYPERTENSION
     Dosage: 50 MG
     Route: 048
  2. NIFEDIPINE [Concomitant]
     Indication: HYPERTENSION
     Route: 048
  3. COZAAR [Concomitant]
     Indication: HYPERTENSION
     Route: 048
  4. PRADAXA [Suspect]
     Indication: ATRIAL FIBRILLATION
     Dosage: 300 MG
     Route: 048
     Dates: start: 20110401

REACTIONS (6)
  - THROAT IRRITATION [None]
  - SENSATION OF FOREIGN BODY [None]
  - OESOPHAGEAL PAIN [None]
  - ABDOMINAL DISCOMFORT [None]
  - DYSPEPSIA [None]
  - HAEMORRHAGE [None]
